FAERS Safety Report 20742020 (Version 1)
Quarter: 2022Q2

REPORT INFORMATION
  Report Type: Spontaneous
  Country: TR (occurrence: TR)
  Receive Date: 20220423
  Receipt Date: 20220423
  Transmission Date: 20220721
  Serious: Yes (Hospitalization, Other)
  Sender: FDA-Public Use
  Company Number: TR-NOVITIUMPHARMA-2022TRNVP00059

PATIENT
  Age: 41 Year
  Sex: Male

DRUGS (1)
  1. NAPROXEN [Suspect]
     Active Substance: NAPROXEN
     Indication: Headache

REACTIONS (2)
  - Type I hypersensitivity [Recovered/Resolved]
  - Type IV hypersensitivity reaction [Recovered/Resolved]
